FAERS Safety Report 4819619-9 (Version None)
Quarter: 2005Q4

REPORT INFORMATION
  Report Type: 
  Country: None (occurrence: None)
  Receive Date: 20051101
  Receipt Date: 20051101
  Transmission Date: 20060501
  Serious: Yes (Other)
  Sender: FDA-Public Use
  Company Number: None

PATIENT
  Sex: Female
  Weight: 78.0187 kg

DRUGS (1)
  1. ZOCOR [Suspect]
     Indication: HYPERCHOLESTEROLAEMIA
     Dosage: 40 MG PO
     Route: 048
     Dates: start: 20050325, end: 20051001

REACTIONS (3)
  - ASTHENIA [None]
  - MYALGIA [None]
  - SLUGGISHNESS [None]
